FAERS Safety Report 4834391-4 (Version None)
Quarter: 2005Q4

REPORT INFORMATION
  Report Type: 
  Country: None (occurrence: None)
  Receive Date: 20051122
  Receipt Date: 20050715
  Transmission Date: 20060501
  Serious: Yes (Other)
  Sender: FDA-Public Use
  Company Number: PHNU2005DE02597

PATIENT
  Sex: Female

DRUGS (2)
  1. FEMARA [Suspect]
     Dosage: 2.5 MG, QD
     Route: 048
     Dates: start: 20031201
  2. BONEFOS [Suspect]
     Dosage: 400 MG, BID
     Route: 048
     Dates: start: 20030901, end: 20050501

REACTIONS (7)
  - CONDITION AGGRAVATED [None]
  - CONJUNCTIVITIS [None]
  - DRY EYE [None]
  - EPISCLERITIS [None]
  - EYE HAEMORRHAGE [None]
  - EYE INFLAMMATION [None]
  - EYE IRRITATION [None]
